FAERS Safety Report 5582931-2 (Version None)
Quarter: 2008Q1

REPORT INFORMATION
  Report Type: 
  Country: None (occurrence: None)
  Receive Date: 20080107
  Receipt Date: 20080102
  Transmission Date: 20080703
  Serious: Yes (Other)
  Sender: FDA-Public Use
  Company Number: AU-ROCHE-539137

PATIENT
  Age: 18 Year
  Sex: Male
  Weight: 55 kg

DRUGS (1)
  1. NAPROSYN [Suspect]
     Indication: OTITIS MEDIA
     Route: 048
     Dates: start: 20070730, end: 20070815

REACTIONS (3)
  - DEPRESSED MOOD [None]
  - NEGATIVE THOUGHTS [None]
  - PSYCHOTIC DISORDER [None]
